FAERS Safety Report 5625287-9 (Version None)
Quarter: 2008Q1

REPORT INFORMATION
  Report Type: 
  Country: None (occurrence: None)
  Receive Date: 20080208
  Receipt Date: 20080125
  Transmission Date: 20080703
  Serious: Yes (Hospitalization)
  Sender: FDA-Public Use
  Company Number: POMP-11279

PATIENT
  Age: 47 Year
  Sex: Female
  Weight: 55 kg

DRUGS (5)
  1. MYOZYME [Suspect]
     Indication: GLYCOGEN STORAGE DISEASE TYPE II
     Dosage: 20 MG/KG, Q2W, INTRAVENOUS
     Route: 042
     Dates: start: 20050728
  2. ESOMEPRAZOLE (ESOMEPRAZOLE) [Concomitant]
  3. CITALOPRAM HYDROBROMIDE [Concomitant]
  4. OXYBUTYNIN CHLORIDE [Concomitant]
  5. ACETAMINOPHEN [Concomitant]

REACTIONS (10)
  - ACQUIRED DIAPHRAGMATIC EVENTRATION [None]
  - BRONCHIECTASIS [None]
  - INFUSION RELATED REACTION [None]
  - LUNG DISORDER [None]
  - LUNG INJURY [None]
  - PLEURAL FIBROSIS [None]
  - PNEUMOTHORAX [None]
  - PROCEDURAL COMPLICATION [None]
  - RESPIRATORY FAILURE [None]
  - URINARY TRACT INFECTION [None]
